FAERS Safety Report 10103081 (Version 3)
Quarter: 2014Q4

REPORT INFORMATION
  Report Type: Spontaneous
  Country: US (occurrence: US)
  Receive Date: 20140424
  Receipt Date: 20141023
  Transmission Date: 20150528
  Serious: Yes (Hospitalization, Other)
  Sender: FDA-Public Use
  Company Number: US-GLAXOSMITHKLINE-A1059068A

PATIENT
  Age: 51 Year
  Sex: Male

DRUGS (5)
  1. FLOLAN [Suspect]
     Active Substance: EPOPROSTENOL SODIUM
     Dosage: UNK
     Dates: start: 20070214
  2. COUMADIN [Concomitant]
     Active Substance: WARFARIN SODIUM
  3. FLOLAN [Suspect]
     Active Substance: EPOPROSTENOL SODIUM
     Indication: PULMONARY ARTERIAL HYPERTENSION
     Dosage: 38 NG/KG/MIN
     Route: 065
     Dates: start: 20070214
  4. FLOLAN [Suspect]
     Active Substance: EPOPROSTENOL SODIUM
     Dosage: 44 NG/KG/MIN
  5. FLOLAN [Suspect]
     Active Substance: EPOPROSTENOL SODIUM
     Dosage: 44 NG/KG/MIN

REACTIONS (6)
  - Catheter site pain [Recovered/Resolved]
  - Catheter site erythema [Recovered/Resolved]
  - Catheter removal [Unknown]
  - Catheter site swelling [Recovered/Resolved]
  - Central venous catheterisation [Unknown]
  - Investigation [Unknown]

NARRATIVE: CASE EVENT DATE: 201403
